FAERS Safety Report 7072107 (Version 16)
Quarter: 2018Q1

REPORT INFORMATION
  Report Type: Report from Study
  Country: CA (occurrence: CA)
  Receive Date: 20090804
  Receipt Date: 20180126
  Transmission Date: 20180509
  Serious: Yes (Hospitalization, Other)
  Sender: FDA-Public Use
  Company Number: PHHO2005CA04823

PATIENT
  Age: 41 Year
  Sex: Female

DRUGS (3)
  1. WELLBUTRIN [Concomitant]
     Active Substance: BUPROPION HYDROCHLORIDE
     Indication: PRODUCT USED FOR UNKNOWN INDICATION
     Dosage: 150 MG, UNK
     Route: 048
  2. PAXIL [Concomitant]
     Active Substance: PAROXETINE HYDROCHLORIDE
     Indication: PRODUCT USED FOR UNKNOWN INDICATION
     Dosage: 60 MG, UNK
     Route: 048
  3. SANDOSTATIN LAR DEPOT [Suspect]
     Active Substance: OCTREOTIDE ACETATE
     Indication: ACRAL OVERGROWTH
     Dosage: 20 MG, EVERY 4 WEEKS
     Route: 030
     Dates: start: 20041028

REACTIONS (44)
  - Pain [Recovered/Resolved]
  - Headache [Not Recovered/Not Resolved]
  - Insomnia [Unknown]
  - Somnolence [Unknown]
  - Gait disturbance [Unknown]
  - Lower respiratory tract infection [Unknown]
  - Petit mal epilepsy [Unknown]
  - Fatigue [Not Recovered/Not Resolved]
  - Jaw disorder [Not Recovered/Not Resolved]
  - Pain in jaw [Not Recovered/Not Resolved]
  - Speech disorder [Unknown]
  - Pain in extremity [Not Recovered/Not Resolved]
  - Photophobia [Unknown]
  - Dizziness [Unknown]
  - Facial pain [Recovering/Resolving]
  - Arthralgia [Unknown]
  - Tic [Unknown]
  - Human chorionic gonadotropin increased [Unknown]
  - Vomiting [Unknown]
  - Nausea [Recovered/Resolved]
  - Mastication disorder [Unknown]
  - Hypotension [Unknown]
  - Gastrointestinal disorder [Recovering/Resolving]
  - Abdominal pain upper [Unknown]
  - Neck pain [Not Recovered/Not Resolved]
  - Diarrhoea [Unknown]
  - Malaise [Unknown]
  - Asthenia [Unknown]
  - Tremor [Unknown]
  - Injection site reaction [Unknown]
  - Muscle twitching [Unknown]
  - Migraine [Unknown]
  - Chest pain [Recovered/Resolved]
  - Arthropathy [Unknown]
  - Abdominal distension [Not Recovered/Not Resolved]
  - Back pain [Not Recovered/Not Resolved]
  - Visual impairment [Not Recovered/Not Resolved]
  - Spondylolisthesis [Unknown]
  - Multiple sclerosis [Not Recovered/Not Resolved]
  - Hypoaesthesia [Unknown]
  - Weight decreased [Unknown]
  - Influenza [Unknown]
  - Neuralgia [Unknown]
  - Movement disorder [Unknown]

NARRATIVE: CASE EVENT DATE: 20050306
